FAERS Safety Report 6023116-5 (Version None)
Quarter: 2008Q4

REPORT INFORMATION
  Report Type: 
  Country: None (occurrence: None)
  Receive Date: 20081230
  Receipt Date: 20081219
  Transmission Date: 20090506
  Serious: Yes (Hospitalization)
  Sender: FDA-Public Use
  Company Number: JP-ABBOTT-08P-087-0463701-00

PATIENT
  Age: 71 Year
  Sex: Male

DRUGS (18)
  1. LEUPROLIDE ACETATE [Suspect]
     Indication: PROSTATE CANCER STAGE II
     Route: 058
     Dates: start: 20060405
  2. LIVOSTIN [Concomitant]
     Indication: SEASONAL ALLERGY
     Route: 047
     Dates: start: 20060428
  3. LIVOSTIN [Concomitant]
     Indication: CONJUNCTIVITIS ALLERGIC
  4. DIOVAN [Concomitant]
     Indication: HYPERTENSION
     Route: 048
  5. AMLODIN [Concomitant]
     Indication: HYPERTENSION
     Route: 048
     Dates: end: 20060923
  6. AMARYL [Concomitant]
     Indication: DIABETES MELLITUS
     Route: 048
     Dates: end: 20060922
  7. METFORMIN HCL [Concomitant]
     Indication: DIABETES MELLITUS
     Route: 048
  8. DOXAZON [Concomitant]
     Indication: HYPERTENSION
     Route: 048
  9. HYPADIL [Concomitant]
     Indication: HYPERTENSION
     Route: 048
     Dates: start: 20060928
  10. LASIX [Concomitant]
     Indication: HYPERTENSION
     Route: 048
     Dates: start: 20061002, end: 20070327
  11. LASIX [Concomitant]
     Indication: OEDEMA PERIPHERAL
  12. ADALAT CC [Concomitant]
     Indication: HYPERTENSION
     Route: 048
     Dates: start: 20061003
  13. INSULIN LISPRO [Concomitant]
     Indication: DIABETES MELLITUS
     Dosage: 22-30 UT
     Route: 058
     Dates: start: 20060922
  14. INSULIN LISPRO [Concomitant]
     Route: 058
  15. CASODEX [Concomitant]
     Indication: PROSTATE CANCER STAGE II
     Route: 048
     Dates: start: 20070307, end: 20080206
  16. FLUITRAN [Concomitant]
     Indication: HYPERTENSION
     Route: 048
     Dates: start: 20061205
  17. TANATRIL [Concomitant]
     Indication: HYPERTENSION
     Route: 048
     Dates: start: 20061107
  18. MYSLEE [Concomitant]
     Indication: INSOMNIA
     Route: 048
     Dates: start: 20061205, end: 20071219

REACTIONS (5)
  - ANAEMIA [None]
  - DIABETES MELLITUS [None]
  - HYPOGLYCAEMIA [None]
  - INSOMNIA [None]
  - PRURITUS [None]
